FAERS Safety Report 6044976-8 (Version None)
Quarter: 2009Q1

REPORT INFORMATION
  Report Type: 
  Country: None (occurrence: None)
  Receive Date: 20090116
  Receipt Date: 20090116
  Transmission Date: 20090719
  Serious: Yes (Other)
  Sender: FDA-Public Use
  Company Number: None

PATIENT
  Age: 60 Year
  Sex: Female
  Weight: 83.0083 kg

DRUGS (1)
  1. CARDIZEM CD [Suspect]
     Indication: HYPERTENSION
     Dosage: 1 CAPSULE ONCE DAILY 047
     Dates: start: 20081222

REACTIONS (4)
  - HYPERSENSITIVITY [None]
  - SWELLING FACE [None]
  - SWOLLEN TONGUE [None]
  - URTICARIA [None]
